FAERS Safety Report 18420146 (Version 1)
Quarter: 2020Q4

REPORT INFORMATION
  Report Type: Spontaneous
  Country: US (occurrence: US)
  Receive Date: 20201023
  Receipt Date: 20201023
  Transmission Date: 20210114
  Serious: Yes (Hospitalization, Other)
  Sender: FDA-Public Use
  Company Number: US-APOTEX-2020AP020193

PATIENT
  Age: 62 Year
  Sex: Male

DRUGS (1)
  1. GEMCITABINE. [Suspect]
     Active Substance: GEMCITABINE
     Indication: NON-SMALL CELL LUNG CANCER METASTATIC
     Dosage: UNK, 5 CYCLES
     Route: 065

REACTIONS (6)
  - Acute kidney injury [Recovered/Resolved]
  - Thrombotic microangiopathy [Recovered/Resolved]
  - Intravascular haemolysis [Recovered/Resolved]
  - Systemic bacterial infection [Recovered/Resolved]
  - Clostridium difficile colitis [Recovered/Resolved]
  - Haemolytic anaemia [Recovered/Resolved]
